FAERS Safety Report 9778819 (Version 1)
Quarter: 2013Q4

REPORT INFORMATION
  Report Type: Spontaneous
  Country: US (occurrence: US)
  Receive Date: 20131223
  Receipt Date: 20131223
  Transmission Date: 20140711
  Serious: Yes (Other)
  Sender: FDA-Public Use
  Company Number: US-ELI_LILLY_AND_COMPANY-US201312004586

PATIENT
  Age: 64 Year
  Sex: Female

DRUGS (2)
  1. ALIMTA [Suspect]
     Indication: OVARIAN CANCER
     Dosage: 900 MG/M2, UNKNOWN
     Route: 065
  2. ALIMTA [Suspect]
     Dosage: 650 MG/M2, UNKNOWN
     Route: 065

REACTIONS (6)
  - Haemorrhage [Recovered/Resolved]
  - Neutropenia [Recovered/Resolved]
  - Haematocrit decreased [Recovered/Resolved]
  - Haemoglobin decreased [Recovered/Resolved]
  - Platelet count decreased [Recovered/Resolved]
  - Off label use [Unknown]
